FAERS Safety Report 21902171 (Version 2)
Quarter: 2023Q1

REPORT INFORMATION
  Report Type: Spontaneous
  Country: US (occurrence: US)
  Receive Date: 20230124
  Receipt Date: 20230209
  Transmission Date: 20230418
  Serious: No
  Sender: FDA-Public Use
  Company Number: US-HETERO-HET2023US00101

PATIENT
  Sex: Male
  Weight: 82 kg

DRUGS (1)
  1. SILDENAFIL [Suspect]
     Active Substance: SILDENAFIL
     Indication: Erectile dysfunction
     Dosage: 100 MG, ONCE A DAY (BOTTLE OF 30 TABLETS)
     Route: 048
     Dates: start: 202301, end: 20230116

REACTIONS (2)
  - Product substitution issue [Unknown]
  - Drug ineffective [Unknown]
